FAERS Safety Report 13417836 (Version 1)
Quarter: 2017Q2

REPORT INFORMATION
  Report Type: Spontaneous
  Country: RU (occurrence: RU)
  Receive Date: 20170406
  Receipt Date: 20170406
  Transmission Date: 20170830
  Serious: Yes (Hospitalization)
  Sender: FDA-Public Use
  Company Number: ALCN2017RU002451

PATIENT
  Age: 62 Year
  Sex: Female

DRUGS (1)
  1. TOBREX [Suspect]
     Active Substance: TOBRAMYCIN
     Indication: PRODUCT USED FOR UNKNOWN INDICATION
     Route: 047

REACTIONS (3)
  - Urticaria [Recovered/Resolved]
  - Pyrexia [Recovered/Resolved]
  - Angioedema [Recovered/Resolved]
